FAERS Safety Report 11453166 (Version 3)
Quarter: 2016Q1

REPORT INFORMATION
  Report Type: Spontaneous
  Country: US (occurrence: US)
  Receive Date: 20150831
  Receipt Date: 20160204
  Transmission Date: 20160525
  Serious: Yes (Other)
  Sender: FDA-Public Use
  Company Number: US-ELI_LILLY_AND_COMPANY-US200911000553

PATIENT
  Age: 57 Year
  Sex: Female

DRUGS (8)
  1. CYMBALTA [Suspect]
     Active Substance: DULOXETINE HYDROCHLORIDE
     Dosage: 1 D/F, UNK
     Dates: start: 2009, end: 20090810
  2. SEROQUEL [Concomitant]
     Active Substance: QUETIAPINE FUMARATE
  3. CYMBALTA [Suspect]
     Active Substance: DULOXETINE HYDROCHLORIDE
     Dosage: 60 MG, DAILY (1/D)
  4. HYDROCODONE [Concomitant]
     Active Substance: HYDROCODONE
  5. CYMBALTA [Suspect]
     Active Substance: DULOXETINE HYDROCHLORIDE
     Dosage: 30 MG, UNK
     Dates: start: 2009
  6. CYMBALTA [Suspect]
     Active Substance: DULOXETINE HYDROCHLORIDE
     Indication: FIBROMYALGIA
     Dosage: 30 MG, DAILY (1/D)
     Dates: start: 2006
  7. CYMBALTA [Suspect]
     Active Substance: DULOXETINE HYDROCHLORIDE
     Dosage: 90 MG, DAILY (1/D)
     Dates: end: 200908
  8. XANAX [Concomitant]
     Active Substance: ALPRAZOLAM

REACTIONS (19)
  - Headache [Unknown]
  - Nausea [Unknown]
  - Vomiting [Unknown]
  - Drug withdrawal syndrome [Not Recovered/Not Resolved]
  - Suicidal ideation [Not Recovered/Not Resolved]
  - Dizziness [Unknown]
  - Cognitive disorder [Not Recovered/Not Resolved]
  - Fatigue [Unknown]
  - Irritability [Unknown]
  - Insomnia [Unknown]
  - Mood swings [Unknown]
  - Sensory disturbance [Unknown]
  - Nightmare [Unknown]
  - Vertigo [Unknown]
  - Diarrhoea [Unknown]
  - Hyperhidrosis [Unknown]
  - Paraesthesia [Not Recovered/Not Resolved]
  - Anxiety [Unknown]
  - Seizure [Unknown]

NARRATIVE: CASE EVENT DATE: 200908
